FAERS Safety Report 13325167 (Version 2)
Quarter: 2017Q2

REPORT INFORMATION
  Report Type: Report from Study
  Country: CO (occurrence: CO)
  Receive Date: 20170310
  Receipt Date: 20170510
  Transmission Date: 20170830
  Serious: Yes (Death, Hospitalization, Other)
  Sender: FDA-Public Use
  Company Number: DE-ACTELION-A-US2017-151020

PATIENT
  Age: 63 Year
  Sex: Female

DRUGS (6)
  1. TRACLEER [Concomitant]
     Active Substance: BOSENTAN
     Indication: PULMONARY HYPERTENSION
     Route: 048
  2. FUROSEMIDE. [Concomitant]
     Active Substance: FUROSEMIDE
  3. VENTAVIS [Suspect]
     Active Substance: ILOPROST
     Indication: PULMONARY HYPERTENSION
     Dosage: 6 DF, QD
     Route: 055
     Dates: start: 20140701, end: 20170227
  4. URSACOL [Concomitant]
     Active Substance: URSODIOL
  5. OXYGEN. [Concomitant]
     Active Substance: OXYGEN
  6. SPIRONOLACTONE. [Concomitant]
     Active Substance: SPIRONOLACTONE

REACTIONS (8)
  - Hepatic cirrhosis [Unknown]
  - Hepatic failure [Unknown]
  - Renal failure [Unknown]
  - Gastritis [Unknown]
  - Oedema peripheral [Recovering/Resolving]
  - Cardio-respiratory arrest [Fatal]
  - Abdominal pain [Recovering/Resolving]
  - Contusion [Unknown]

NARRATIVE: CASE EVENT DATE: 20160202
